FAERS Safety Report 23948597 (Version 2)
Quarter: 2024Q2

REPORT INFORMATION
  Report Type: Spontaneous
  Country: US (occurrence: US)
  Receive Date: 20240607
  Receipt Date: 20240625
  Transmission Date: 20240716
  Serious: No
  Sender: FDA-Public Use
  Company Number: US-SANOFI-02069427

PATIENT
  Age: 76 Year
  Sex: Female

DRUGS (1)
  1. SOLIQUA 100/33 [Suspect]
     Active Substance: INSULIN GLARGINE\LIXISENATIDE
     Indication: Type 2 diabetes mellitus
     Dosage: 15 IU, QD
     Route: 065

REACTIONS (3)
  - Blood glucose increased [Recovered/Resolved]
  - Incorrect dose administered by device [Recovered/Resolved]
  - Device mechanical issue [Unknown]
